FAERS Safety Report 6337637-9 (Version None)
Quarter: 2009Q3

REPORT INFORMATION
  Report Type: 
  Country: None (occurrence: None)
  Receive Date: 20090902
  Receipt Date: 20090828
  Transmission Date: 20100115
  Serious: Yes (Life-Threatening)
  Sender: FDA-Public Use
  Company Number: GB-AVENTIS-200919624GDDC

PATIENT
  Age: 63 Year
  Sex: Male

DRUGS (12)
  1. TAXOTERE [Suspect]
     Indication: PROSTATE CANCER METASTATIC
     Route: 042
     Dates: start: 20090811, end: 20090811
  2. TAXOTERE [Suspect]
  3. BENDROFLUMETHIAZIDE [Concomitant]
  4. DIETHYL-STILBESTROL TAB [Concomitant]
  5. FELODIPINE [Concomitant]
  6. GOSERELIN [Concomitant]
  7. NAPROXEN [Concomitant]
  8. OXYCODONE [Concomitant]
  9. OXYCONTIN [Concomitant]
  10. PARACETAMOL [Concomitant]
  11. PERINDOPRIL [Concomitant]
  12. PREDNISOLONE [Concomitant]

REACTIONS (1)
  - CARDIAC ARREST [None]
